FAERS Safety Report 10041425 (Version 2)
Quarter: 2014Q2

REPORT INFORMATION
  Report Type: Spontaneous
  Country: BR (occurrence: BR)
  Receive Date: 20140327
  Receipt Date: 20140424
  Transmission Date: 20141212
  Serious: Yes (Other)
  Sender: FDA-Public Use
  Company Number: BR-ASTRAZENECA-2014SE19559

PATIENT
  Age: 46 Year
  Sex: Male
  Weight: 85 kg

DRUGS (1)
  1. ATACAND HCT [Suspect]
     Indication: HYPERTENSION
     Dosage: 16/12.5 MG, DAILY
     Route: 048
     Dates: start: 20140213, end: 20140315

REACTIONS (3)
  - Rash papular [Recovered/Resolved]
  - Haemorrhage [Unknown]
  - Pruritus [Recovered/Resolved]
